FAERS Safety Report 7244533-1 (Version None)
Quarter: 2011Q1

REPORT INFORMATION
  Report Type: 
  Country: None (occurrence: None)
  Receive Date: 20110125
  Receipt Date: 20110118
  Transmission Date: 20110831
  Serious: Yes (Other)
  Sender: FDA-Public Use
  Company Number: US-ELI_LILLY_AND_COMPANY-US201012003988

PATIENT
  Age: 30 Year
  Sex: Female
  Weight: 64.853 kg

DRUGS (11)
  1. ZYPREXA [Concomitant]
  2. METOCLOPRAMIDE [Concomitant]
  3. ZOCOR [Concomitant]
  4. HUMALOG [Suspect]
     Indication: TYPE 1 DIABETES MELLITUS
     Dosage: UNK, 3/D
     Route: 058
     Dates: start: 20100608
  5. HYOSCYAMINE [Concomitant]
  6. GABAPENTIN [Concomitant]
  7. ENALAPRIL MALEATE [Concomitant]
  8. LANTUS [Concomitant]
  9. METFORMIN HCL [Concomitant]
  10. PRILOSEC [Concomitant]
  11. CLONIDINE [Concomitant]

REACTIONS (1)
  - BLINDNESS [None]
